FAERS Safety Report 14251189 (Version 1)
Quarter: 2017Q4

REPORT INFORMATION
  Report Type: Report from Study
  Country: GB (occurrence: GB)
  Receive Date: 20171205
  Receipt Date: 20171205
  Transmission Date: 20180321
  Serious: Yes (Hospitalization)
  Sender: FDA-Public Use
  Company Number: GB-BAYER-2017-229233

PATIENT
  Age: 45 Year
  Sex: Female

DRUGS (5)
  1. LAXIDO [Concomitant]
     Active Substance: POLYETHYLENE GLYCOL 3350\POTASSIUM CHLORIDE\SODIUM BICARBONATE\SODIUM CHLORIDE
     Dosage: UNK
     Dates: start: 20170509
  2. PHOSPHATE [PHOSPHORIC ACID SODIUM] [Concomitant]
     Indication: ENEMA ADMINISTRATION
     Dosage: UNK
     Dates: start: 20170509
  3. BUSCOPAN [Concomitant]
     Active Substance: BUTYLSCOPOLAMINE BROMIDE
     Dosage: UNK
     Dates: start: 20170509
  4. STOOL SOFTENER (DOCUSATE) [Concomitant]
     Active Substance: DOCUSATE
     Dosage: UNK
     Dates: start: 20170509
  5. ASPIRIN. [Suspect]
     Active Substance: ASPIRIN
     Indication: NEOPLASM PROPHYLAXIS
     Dosage: UNK
     Dates: start: 20161111, end: 20170714

REACTIONS (2)
  - Colitis ischaemic [Recovered/Resolved]
  - Necrotising colitis [Recovered/Resolved]

NARRATIVE: CASE EVENT DATE: 20170714
